FAERS Safety Report 15297935 (Version 3)
Quarter: 2020Q3

REPORT INFORMATION
  Report Type: Spontaneous
  Country: JP (occurrence: JP)
  Receive Date: 20180820
  Receipt Date: 20200714
  Transmission Date: 20201102
  Serious: Yes (Hospitalization, Other)
  Sender: FDA-Public Use
  Company Number: JP-JNJFOC-20150706640

PATIENT
  Sex: Male
  Weight: 61 kg

DRUGS (9)
  1. XYZAL [Concomitant]
     Active Substance: LEVOCETIRIZINE DIHYDROCHLORIDE
     Route: 048
     Dates: start: 20150525
  2. LOPEMIN [Concomitant]
     Indication: DIARRHOEA
     Route: 048
  3. REMICADE [Suspect]
     Active Substance: INFLIXIMAB
     Indication: CROHN^S DISEASE
     Route: 042
     Dates: start: 200804
  4. XYZAL [Concomitant]
     Active Substance: LEVOCETIRIZINE DIHYDROCHLORIDE
     Route: 048
     Dates: start: 20150525
  5. REMICADE [Suspect]
     Active Substance: INFLIXIMAB
     Route: 042
     Dates: start: 201109
  6. REMICADE [Suspect]
     Active Substance: INFLIXIMAB
     Route: 042
  7. LEUKERIN [Suspect]
     Active Substance: MERCAPTOPURINE
     Indication: CROHN^S DISEASE
     Dosage: AFTER BREAKFAST
     Route: 048
     Dates: start: 20150525, end: 20150702
  8. LEUKERIN [Suspect]
     Active Substance: MERCAPTOPURINE
     Route: 048
  9. REMICADE [Suspect]
     Active Substance: INFLIXIMAB
     Dosage: 600 MG
     Route: 042
     Dates: start: 20150529, end: 20150529

REACTIONS (6)
  - Pulmonary tuberculosis [Recovering/Resolving]
  - Pneumonia [Unknown]
  - Tuberculosis [Unknown]
  - Haemorrhoids [Unknown]
  - Therapeutic response decreased [Unknown]
  - Tumour marker increased [Unknown]

NARRATIVE: CASE EVENT DATE: 2012
